FAERS Safety Report 5428451-7 (Version None)
Quarter: 2007Q3

REPORT INFORMATION
  Report Type: 
  Country: None (occurrence: None)
  Receive Date: 20070731
  Receipt Date: 20070430
  Transmission Date: 20080115
  Serious: No
  Sender: FDA-Public Use
  Company Number: US200705000237

PATIENT
  Age: 65 Year
  Sex: Female

DRUGS (5)
  1. BYETTA [Suspect]
     Indication: INSULIN-REQUIRING TYPE II DIABETES MELLITUS
     Dosage: 5 UG, 2/D, SUBCUTANEOUS; 10 UG, 2/D, SUBCUTANEOUS
     Route: 058
     Dates: start: 20050701, end: 20050801
  2. BYETTA [Suspect]
     Indication: INSULIN-REQUIRING TYPE II DIABETES MELLITUS
     Dosage: 5 UG, 2/D, SUBCUTANEOUS; 10 UG, 2/D, SUBCUTANEOUS
     Route: 058
     Dates: start: 20050801
  3. EXENATIDE 5 MCG PEN, DISPOSABLE DEVICE (EXENTIDE PEN (5 MCG)) PEN, DIS [Concomitant]
  4. GLUCOVANCE (GLIBENCLAMIDE, METFORMING, HYDROCHLORIDE) [Concomitant]
  5. LEVEMIR (INSULIN DETEMIR) [Concomitant]

REACTIONS (5)
  - BLOOD GLUCOSE DECREASED [None]
  - BLOOD GLUCOSE INCREASED [None]
  - NAUSEA [None]
  - SOMNOLENCE [None]
  - TREMOR [None]
